FAERS Safety Report 8886455 (Version 4)
Quarter: 2012Q4

REPORT INFORMATION
  Report Type: 
  Country: JP (occurrence: JP)
  Receive Date: 20121105
  Receipt Date: 20121211
  Transmission Date: 20130627
  Serious: Yes (Hospitalization)
  Sender: FDA-Public Use
  Company Number: JP-GLAXOSMITHKLINE-B0841831A

PATIENT
  Age: 24 Year
  Sex: Female
  Weight: 82 kg

DRUGS (7)
  1. ARIXTRA [Suspect]
     Indication: THROMBOSIS PROPHYLAXIS
     Dosage: 2.5MG Per day
     Route: 058
     Dates: start: 20121009, end: 20121011
  2. FRAGMIN [Concomitant]
     Indication: THROMBOSIS PROPHYLAXIS
     Dosage: 5000IU Per day
     Route: 042
     Dates: start: 20121007, end: 20121008
  3. CHINESE MEDICINE [Concomitant]
     Indication: OEDEMA
     Dosage: 2.5G Three times per day
     Route: 048
     Dates: start: 20121010
  4. LOBU [Concomitant]
     Indication: PAIN
     Dosage: 60MG Three times per day
     Route: 048
     Dates: start: 20121010
  5. ADALAT-CR [Concomitant]
     Indication: GESTATIONAL HYPERTENSION
     Dosage: 20MG Twice per day
     Route: 048
     Dates: start: 20121008
  6. ALDOMET [Concomitant]
     Indication: GESTATIONAL HYPERTENSION
     Dosage: 250MG Twice per day
     Route: 048
     Dates: start: 20121008
  7. CHINESE MEDICINE [Concomitant]
     Indication: CONSTIPATION
     Dosage: 2.5G Three times per day
     Route: 048
     Dates: start: 20121011

REACTIONS (2)
  - Intra-abdominal haematoma [Recovering/Resolving]
  - Anaemia [Recovered/Resolved]
